FAERS Safety Report 8677092 (Version 2)
Quarter: 2013Q4

REPORT INFORMATION
  Report Type: Spontaneous
  Country: US (occurrence: US)
  Receive Date: 20120723
  Receipt Date: 20131031
  Transmission Date: 20140711
  Serious: No
  Sender: FDA-Public Use
  Company Number: US-009507513-2012SP032755

PATIENT
  Sex: Female

DRUGS (2)
  1. NUVARING [Suspect]
     Indication: ANAEMIA
     Dosage: 1 DF, UNK
     Route: 067
  2. NUVARING [Suspect]
     Indication: MENORRHAGIA

REACTIONS (2)
  - Bacterial vaginosis [Unknown]
  - Off label use [Unknown]
